FAERS Safety Report 18240690 (Version 1)
Quarter: 2020Q3

REPORT INFORMATION
  Report Type: Spontaneous
  Country: US (occurrence: US)
  Receive Date: 20200908
  Receipt Date: 20200908
  Transmission Date: 20201103
  Serious: No
  Sender: FDA-Public Use
  Company Number: US-BAYER-2020-189031

PATIENT
  Sex: Female

DRUGS (2)
  1. MIRENA [Suspect]
     Active Substance: LEVONORGESTREL
     Indication: MENORRHAGIA
     Dosage: 20 ?G PER DAY CONTINUOUSLY
     Route: 015
     Dates: start: 20200903
  2. MIRENA [Suspect]
     Active Substance: LEVONORGESTREL
     Indication: UTERINE LEIOMYOMA

REACTIONS (6)
  - Fatigue [None]
  - Contraindicated device used [None]
  - Procedural nausea [None]
  - Procedural dizziness [None]
  - Procedural headache [None]
  - Medical device monitoring error [None]

NARRATIVE: CASE EVENT DATE: 202009
